FAERS Safety Report 16923874 (Version 13)
Quarter: 2020Q3

REPORT INFORMATION
  Report Type: Report from Study
  Country: TR (occurrence: TR)
  Receive Date: 20191016
  Receipt Date: 20200902
  Transmission Date: 20201102
  Serious: Yes (Hospitalization)
  Sender: FDA-Public Use
  Company Number: TR-ROCHE-2239295

PATIENT
  Age: 42 Year
  Sex: Female
  Weight: 66.9 kg

DRUGS (70)
  1. AVIL [Concomitant]
     Active Substance: PHENIRAMINE
     Dates: start: 20190410, end: 20190410
  2. AVIL [Concomitant]
     Active Substance: PHENIRAMINE
     Dates: start: 20190502, end: 20190502
  3. AVIL [Concomitant]
     Active Substance: PHENIRAMINE
     Dates: start: 20190524, end: 20190524
  4. ULCURAN [Concomitant]
     Active Substance: RANITIDINE HYDROCHLORIDE
     Dates: start: 20190402, end: 20190402
  5. ZOFRAN [Concomitant]
     Active Substance: ONDANSETRON HYDROCHLORIDE
     Dates: start: 20190204, end: 20190204
  6. AUGMENTIN BID [Concomitant]
     Active Substance: AMOXICILLIN\CLAVULANATE POTASSIUM
     Dates: start: 20180118, end: 20190201
  7. ZOFRAN [Concomitant]
     Active Substance: ONDANSETRON HYDROCHLORIDE
     Dates: start: 20190502, end: 20190502
  8. DEKORT [Concomitant]
     Active Substance: DEXAMETHASONE
     Dates: start: 20190204, end: 20190204
  9. CIPRO [Concomitant]
     Active Substance: CIPROFLOXACIN HYDROCHLORIDE
     Dates: start: 20190118, end: 20190208
  10. ULCURAN [Concomitant]
     Active Substance: RANITIDINE HYDROCHLORIDE
     Dates: start: 20190424, end: 20190424
  11. EMEND [Concomitant]
     Active Substance: APREPITANT
     Dates: start: 20190516, end: 20190516
  12. ZOFRAN [Concomitant]
     Active Substance: ONDANSETRON HYDROCHLORIDE
     Dates: start: 20190320, end: 20190320
  13. DEKORT [Concomitant]
     Active Substance: DEXAMETHASONE
     Dates: start: 20190125, end: 20190125
  14. DEKORT [Concomitant]
     Active Substance: DEXAMETHASONE
     Dates: start: 20190218, end: 20190218
  15. DEKORT [Concomitant]
     Active Substance: DEXAMETHASONE
     Dates: start: 20190311, end: 20190311
  16. DEKORT [Concomitant]
     Active Substance: DEXAMETHASONE
     Dates: start: 20190320, end: 20190320
  17. DEKORT [Concomitant]
     Active Substance: DEXAMETHASONE
     Dates: start: 20190524
  18. CARBOPLATIN. [Suspect]
     Active Substance: CARBOPLATIN
     Indication: TRIPLE NEGATIVE BREAST CANCER
     Dosage: MOST RECENT DOSE OF CARBOPLATIN PRIOR TO PNEUMONIA: 28/DEC/2018?DATE OF MOST RECENT DOSE (150 MG) OF
     Route: 042
     Dates: start: 20181228
  19. FOSTER [Concomitant]
     Active Substance: BECLOMETHASONE\FORMOTEROL
     Dates: start: 20190118, end: 20190201
  20. AVIL [Concomitant]
     Active Substance: PHENIRAMINE
     Dates: start: 20190204, end: 20190204
  21. AVIL [Concomitant]
     Active Substance: PHENIRAMINE
     Dates: start: 20190218, end: 20190218
  22. AVIL [Concomitant]
     Active Substance: PHENIRAMINE
     Dates: start: 20190402, end: 20190402
  23. ULCURAN [Concomitant]
     Active Substance: RANITIDINE HYDROCHLORIDE
     Dates: start: 20190218, end: 20190218
  24. ULCURAN [Concomitant]
     Active Substance: RANITIDINE HYDROCHLORIDE
     Dates: start: 20190410, end: 20190410
  25. EMEND [Concomitant]
     Active Substance: APREPITANT
     Dates: start: 20190402, end: 20190404
  26. ATEZOLIZUMAB. [Suspect]
     Active Substance: ATEZOLIZUMAB
     Indication: TRIPLE NEGATIVE BREAST CANCER
     Dosage: MOST RECENT DOSE OF BLINDED ATEZOLIZUMAB: 28/DEC/2018?DATE OF MOST RECENT DOSE OF BLINDED ATEZOLIZUM
     Route: 042
     Dates: start: 20181228
  27. AUGMENTIN BID [Concomitant]
     Active Substance: AMOXICILLIN\CLAVULANATE POTASSIUM
     Dates: start: 20190612, end: 20190615
  28. AVIL [Concomitant]
     Active Substance: PHENIRAMINE
     Indication: PROPHYLAXIS
     Dates: start: 20190125, end: 20190125
  29. AVIL [Concomitant]
     Active Substance: PHENIRAMINE
     Dates: start: 20190311, end: 20190311
  30. AVIL [Concomitant]
     Active Substance: PHENIRAMINE
     Dates: start: 20181228, end: 20181228
  31. ULCURAN [Concomitant]
     Active Substance: RANITIDINE HYDROCHLORIDE
     Dates: start: 20190225, end: 20190225
  32. ULCURAN [Concomitant]
     Active Substance: RANITIDINE HYDROCHLORIDE
     Dates: start: 20190502, end: 20190502
  33. ULCURAN [Concomitant]
     Active Substance: RANITIDINE HYDROCHLORIDE
     Dates: start: 20190524, end: 20190524
  34. ZOFRAN [Concomitant]
     Active Substance: ONDANSETRON HYDROCHLORIDE
     Dates: start: 20190125, end: 20190125
  35. ZOFRAN [Concomitant]
     Active Substance: ONDANSETRON HYDROCHLORIDE
     Dates: start: 20190424, end: 20190424
  36. DEKORT [Concomitant]
     Active Substance: DEXAMETHASONE
     Indication: PREMEDICATION
     Dates: start: 20181228, end: 20181228
  37. DEKORT [Concomitant]
     Active Substance: DEXAMETHASONE
     Dates: start: 20190410, end: 20190410
  38. GEMCITABINE. [Suspect]
     Active Substance: GEMCITABINE
     Indication: TRIPLE NEGATIVE BREAST CANCER
     Dosage: MOST RECENT DOSE OF GEMCITABINE PRIOR TO PNEUMONIA: 28/DEC/2018?DATE OF MOST RECENT DOSE OF GEMCITAB
     Route: 042
     Dates: start: 20181228
  39. AVIL [Concomitant]
     Active Substance: PHENIRAMINE
     Dates: start: 20190424, end: 20190424
  40. ULCURAN [Concomitant]
     Active Substance: RANITIDINE HYDROCHLORIDE
     Dates: start: 20190320, end: 20190320
  41. ZOFRAN [Concomitant]
     Active Substance: ONDANSETRON HYDROCHLORIDE
     Dates: start: 20190218, end: 20190218
  42. ZOFRAN [Concomitant]
     Active Substance: ONDANSETRON HYDROCHLORIDE
     Dates: start: 20190311, end: 20190311
  43. ZOFRAN [Concomitant]
     Active Substance: ONDANSETRON HYDROCHLORIDE
     Dates: start: 20190402, end: 20190402
  44. ZOFRAN [Concomitant]
     Active Substance: ONDANSETRON HYDROCHLORIDE
     Dates: start: 20190410, end: 20190410
  45. GRANEXA [Concomitant]
     Indication: PROPHYLAXIS
     Dates: start: 20181228
  46. AVIL [Concomitant]
     Active Substance: PHENIRAMINE
     Dates: start: 20190225, end: 20190225
  47. AVIL [Concomitant]
     Active Substance: PHENIRAMINE
     Dates: start: 20190320, end: 20190320
  48. ULCURAN [Concomitant]
     Active Substance: RANITIDINE HYDROCHLORIDE
     Indication: PROPHYLAXIS
     Dates: start: 20190125, end: 20190125
  49. EMEND [Concomitant]
     Active Substance: APREPITANT
     Dates: start: 20190125, end: 20190127
  50. EMEND [Concomitant]
     Active Substance: APREPITANT
     Dates: start: 20190424, end: 20190426
  51. ZOFRAN [Concomitant]
     Active Substance: ONDANSETRON HYDROCHLORIDE
     Indication: PROPHYLAXIS
     Dates: start: 20190524, end: 20190524
  52. ZOFRAN [Concomitant]
     Active Substance: ONDANSETRON HYDROCHLORIDE
     Dates: start: 20190516, end: 20190516
  53. METPAMID [Concomitant]
     Active Substance: METOCLOPRAMIDE
     Indication: PNEUMONIA
     Dates: start: 20190318, end: 20190409
  54. DEKORT [Concomitant]
     Active Substance: DEXAMETHASONE
     Dates: start: 20190402, end: 20190402
  55. DEKORT [Concomitant]
     Active Substance: DEXAMETHASONE
     Dates: start: 20190424, end: 20190424
  56. DEKORT [Concomitant]
     Active Substance: DEXAMETHASONE
     Dates: start: 20190502, end: 20190502
  57. DILTIZEM [Concomitant]
     Dates: start: 20190614
  58. CORDARONE [Concomitant]
     Active Substance: AMIODARONE HYDROCHLORIDE
     Dates: start: 20190614, end: 20190619
  59. AVIL [Concomitant]
     Active Substance: PHENIRAMINE
     Dates: start: 20190516, end: 20190516
  60. ULCURAN [Concomitant]
     Active Substance: RANITIDINE HYDROCHLORIDE
     Dates: start: 20190204, end: 20190204
  61. ULCURAN [Concomitant]
     Active Substance: RANITIDINE HYDROCHLORIDE
     Dates: start: 20190311, end: 20190311
  62. ULCURAN [Concomitant]
     Active Substance: RANITIDINE HYDROCHLORIDE
     Dates: start: 20181228, end: 20181228
  63. ULCURAN [Concomitant]
     Active Substance: RANITIDINE HYDROCHLORIDE
     Dates: start: 20190516, end: 20190516
  64. EMEND [Concomitant]
     Active Substance: APREPITANT
     Dates: start: 20190218, end: 20190220
  65. EMEND [Concomitant]
     Active Substance: APREPITANT
     Dates: start: 20190311, end: 20190313
  66. ZOFRAN [Concomitant]
     Active Substance: ONDANSETRON HYDROCHLORIDE
     Dates: start: 20190225, end: 20190225
  67. ZOFRAN [Concomitant]
     Active Substance: ONDANSETRON HYDROCHLORIDE
     Dates: start: 20190516, end: 20190516
  68. DEKORT [Concomitant]
     Active Substance: DEXAMETHASONE
     Dates: start: 20190225, end: 20190225
  69. DEKORT [Concomitant]
     Active Substance: DEXAMETHASONE
     Dates: start: 20190516, end: 20190516
  70. MORFIA [Concomitant]
     Dates: start: 201811

REACTIONS (1)
  - Pneumonia [Recovered/Resolved]

NARRATIVE: CASE EVENT DATE: 20181230
